FAERS Safety Report 15190727 (Version 5)
Quarter: 2018Q4

REPORT INFORMATION
  Report Type: Spontaneous
  Country: PL (occurrence: PL)
  Receive Date: 20180724
  Receipt Date: 20180911
  Transmission Date: 20190204
  Serious: Yes (Other)
  Sender: FDA-Public Use
  Company Number: PL-GLAXOSMITHKLINE-PL2018121541

PATIENT
  Age: 65 Year
  Sex: Female

DRUGS (26)
  1. ATORVASTATIN CALCIUM. [Interacting]
     Active Substance: ATORVASTATIN CALCIUM
     Indication: HYPERTENSION
     Dosage: 20 MG, QD
     Route: 065
  2. PERAZINE [Suspect]
     Active Substance: PERAZINE
     Indication: DEPRESSION
     Dosage: 75 MG, QD
     Route: 065
  3. SULPIRIDE [Interacting]
     Active Substance: SULPIRIDE
     Dosage: 10 MG, QD
     Route: 065
  4. PROPAFENONE HYDROCHLORIDE. [Suspect]
     Active Substance: PROPAFENONE HYDROCHLORIDE
     Indication: HYPERLIPIDAEMIA
  5. AMLODIPINE BESILATE [Suspect]
     Active Substance: AMLODIPINE BESYLATE
     Indication: HYPERTENSION
     Dosage: 5 MG, 1X/DAY
     Route: 065
  6. AMLODIPINE BESILATE [Suspect]
     Active Substance: AMLODIPINE BESYLATE
     Indication: ARRHYTHMIA SUPRAVENTRICULAR
  7. ACETYLSALICYLIC ACID [Interacting]
     Active Substance: ASPIRIN
     Indication: HYPOTENSION
     Dosage: 75 MG, QD
     Route: 065
  8. LEVOMEPROMAZINE [Suspect]
     Active Substance: LEVOMEPROMAZINE
     Indication: DEPRESSION
     Dosage: 50 MG, AT BEDTIME
     Route: 065
  9. SULPIRIDE [Interacting]
     Active Substance: SULPIRIDE
     Indication: DEPRESSION
     Dosage: 50 MG, QD
     Route: 065
  10. PROPAFENONE HYDROCHLORIDE. [Suspect]
     Active Substance: PROPAFENONE HYDROCHLORIDE
     Indication: ARRHYTHMIA SUPRAVENTRICULAR
     Dosage: 150 MG, QD
     Route: 065
  11. PROPAFENONE HYDROCHLORIDE. [Suspect]
     Active Substance: PROPAFENONE HYDROCHLORIDE
     Indication: HYPERTENSION
     Dosage: 450 MG, QD
     Route: 065
  12. ENALAPRIL + HIDROCLOROTIAZIDA [Interacting]
     Active Substance: ENALAPRIL MALEATE\HYDROCHLOROTHIAZIDE
     Indication: HYPERLIPIDAEMIA
     Dosage: 12.5 MG, QD
     Route: 065
  13. ENALAPRIL + HIDROCLOROTIAZIDA [Interacting]
     Active Substance: ENALAPRIL MALEATE\HYDROCHLOROTHIAZIDE
     Indication: ARRHYTHMIA SUPRAVENTRICULAR
  14. ENALAPRIL + HIDROCLOROTIAZIDA [Interacting]
     Active Substance: ENALAPRIL MALEATE\HYDROCHLOROTHIAZIDE
     Indication: HYPERTENSION
  15. LANSOPRAZOLE. [Interacting]
     Active Substance: LANSOPRAZOLE
     Indication: PRODUCT USED FOR UNKNOWN INDICATION
     Dosage: 15 MG, 1X/DAY
     Route: 065
  16. ACETYLSALICYLIC ACID [Interacting]
     Active Substance: ASPIRIN
     Indication: HYPERLIPIDAEMIA
     Dosage: UNK
     Route: 065
  17. SULPIRIDE [Interacting]
     Active Substance: SULPIRIDE
     Dosage: 150 MG, QD
     Route: 065
  18. SULPIRIDE ADAMANTANECARBOXYLATE [Suspect]
     Active Substance: SULPIRIDE ADAMANTANECARBOXYLATE
     Indication: DEPRESSION
     Dosage: 150 MG, QD
     Route: 065
  19. AMITRIPTYLINE HYDROCHLORIDE. [Suspect]
     Active Substance: AMITRIPTYLINE HYDROCHLORIDE
     Indication: DEPRESSION
     Dosage: 225 MG, QD
     Route: 065
  20. SERTRALINE [Suspect]
     Active Substance: SERTRALINE HYDROCHLORIDE
     Indication: DEPRESSION
     Dosage: 100 MG, QD, IN THE MORNING
     Route: 065
  21. CANDESARTAN CILEXETIL + HYDROCHLOROTHIAZIDE [Interacting]
     Active Substance: CANDESARTAN CILEXETIL\HYDROCHLOROTHIAZIDE
     Indication: HYPERTENSION
     Dosage: 16 / 12.5 MG, QD
     Route: 048
  22. BUSPIRONE HYDROCHLORIDE. [Suspect]
     Active Substance: BUSPIRONE HYDROCHLORIDE
     Indication: DEPRESSION
     Dosage: 10 MG, QD
     Route: 065
  23. ACETYLSALICYLIC ACID [Interacting]
     Active Substance: ASPIRIN
     Indication: ARRHYTHMIA
  24. ATORVASTATIN CALCIUM. [Interacting]
     Active Substance: ATORVASTATIN CALCIUM
     Indication: HYPERLIPIDAEMIA
     Dosage: UNK
     Route: 065
  25. LAMOTRIGINE. [Suspect]
     Active Substance: LAMOTRIGINE
     Indication: DEPRESSION
     Dosage: 150 MG, QD
     Route: 065
  26. VINPOCETINE [Suspect]
     Active Substance: VINPOCETINE
     Indication: DEPRESSION
     Dosage: 15 MG, QD
     Route: 065

REACTIONS (26)
  - Nervous system disorder [Recovered/Resolved]
  - Anhedonia [Recovered/Resolved]
  - Flat affect [Recovering/Resolving]
  - Insomnia [Recovering/Resolving]
  - Anxiety [Recovered/Resolved]
  - Mental disorder [Recovering/Resolving]
  - Fatigue [Recovered/Resolved]
  - Tension [Recovering/Resolving]
  - Amnesia [Recovering/Resolving]
  - Extrapyramidal disorder [Recovered/Resolved]
  - Bradykinesia [Recovered/Resolved]
  - Fall [Recovered/Resolved]
  - Drug ineffective [Unknown]
  - Emotional disorder [Recovering/Resolving]
  - Overweight [Unknown]
  - Dizziness [Recovered/Resolved]
  - Psychomotor retardation [Unknown]
  - Balance disorder [Recovered/Resolved]
  - Disturbance in attention [Recovering/Resolving]
  - Fatigue [Recovering/Resolving]
  - Somnolence [Recovered/Resolved]
  - Depressed mood [Recovering/Resolving]
  - Sleep deficit [Recovered/Resolved]
  - Drug interaction [Unknown]
  - Cognitive disorder [Recovered/Resolved]
  - Depression [Recovering/Resolving]
